FAERS Safety Report 4894015-7 (Version None)
Quarter: 2006Q1

REPORT INFORMATION
  Report Type: 
  Country: None (occurrence: None)
  Receive Date: 20060127
  Receipt Date: 20050502
  Transmission Date: 20060701
  Serious: No
  Sender: FDA-Public Use
  Company Number: US-GLAXOSMITHKLINE-A0556951A

PATIENT
  Age: 22 Year
  Sex: Female

DRUGS (1)
  1. WELLBUTRIN [Suspect]
     Indication: ANXIETY DISORDER
     Dosage: 150MG PER DAY
     Route: 048
     Dates: start: 20050421, end: 20050425

REACTIONS (6)
  - AGITATION [None]
  - CHEILITIS [None]
  - CHEST DISCOMFORT [None]
  - ERYTHEMA [None]
  - HEART RATE INCREASED [None]
  - OCULAR HYPERAEMIA [None]
